FAERS Safety Report 8006706-X (Version None)
Quarter: 2011Q4

REPORT INFORMATION
  Report Type: 
  Country: None (occurrence: None)
  Receive Date: 20111227
  Receipt Date: 20111215
  Transmission Date: 20120403
  Serious: Yes (Other)
  Sender: FDA-Public Use
  Company Number: US-BAYER-2011-121479

PATIENT
  Age: 44 Year
  Sex: Female

DRUGS (2)
  1. MIRENA [Suspect]
     Indication: NEOPLASM PROPHYLAXIS
     Dosage: 20 MCG/24HR, CONT
     Route: 015
     Dates: start: 20061204, end: 20111204
  2. MIRENA [Suspect]
     Indication: CONTRACEPTION

REACTIONS (9)
  - CRYING [None]
  - SUICIDAL IDEATION [None]
  - PAIN [None]
  - EMOTIONAL DISORDER [None]
  - ANGER [None]
  - SCREAMING [None]
  - DEPRESSION [None]
  - MOOD SWINGS [None]
  - WEIGHT INCREASED [None]
